FAERS Safety Report 11211331 (Version 1)
Quarter: 2015Q2

REPORT INFORMATION
  Report Type: Spontaneous
  Country: KR (occurrence: None)
  Receive Date: 20150619
  Receipt Date: 20150619
  Transmission Date: 20150821
  Serious: Yes (Other)
  Sender: FDA-Public Use
  Company Number: FK201502903

PATIENT
  Age: 73 Year
  Sex: Male

DRUGS (3)
  1. ADENOSINE. [Suspect]
     Active Substance: ADENOSINE
     Indication: SCAN MYOCARDIAL PERFUSION
     Dosage: 0.14 MG/KG, 0.14 MG/KG/MIN, INFUSED INTO ANTECUBITAL VEIN
  2. IOMERON (IOMEPROL) [Concomitant]
  3. NORMAL SALINE (SODIUM CHLORIDE) [Concomitant]

REACTIONS (2)
  - Off label use [None]
  - Arteriospasm coronary [None]
